FAERS Safety Report 18156633 (Version 1)
Quarter: 2020Q3

REPORT INFORMATION
  Report Type: Spontaneous
  Country: MY (occurrence: MY)
  Receive Date: 20200817
  Receipt Date: 20200817
  Transmission Date: 20201103
  Serious: No
  Sender: FDA-Public Use
  Company Number: None

PATIENT
  Age: 25 Year
  Sex: Female
  Weight: 59 kg

DRUGS (1)
  1. ALLERPID [LORATADINE\PSEUDOEPHEDRINE SULFATE] [Suspect]
     Active Substance: LORATADINE\PSEUDOEPHEDRINE SULFATE
     Indication: RHINORRHOEA
     Dosage: ?          QUANTITY:1 TABLET(S);?
     Route: 048

REACTIONS (9)
  - Somnolence [None]
  - Tinnitus [None]
  - Dyspnoea [None]
  - Abdominal discomfort [None]
  - Syncope [None]
  - Palpitations [None]
  - Headache [None]
  - Confusional state [None]
  - Dry mouth [None]

NARRATIVE: CASE EVENT DATE: 20200817
